FAERS Safety Report 23791983 (Version 2)
Quarter: 2024Q4

REPORT INFORMATION
  Report Type: Spontaneous
  Country: US (occurrence: US)
  Receive Date: 20240429
  Receipt Date: 20241009
  Transmission Date: 20250115
  Serious: No
  Sender: SANOFI AVENTIS
  Company Number: US-SA-SAC20240425000268

PATIENT
  Age: 55 Year
  Sex: Male

DRUGS (2)
  1. DUPIXENT [Suspect]
     Active Substance: DUPILUMAB
     Indication: Asthma
     Dosage: 300MG, QOW
     Route: 058
  2. FASENRA [Concomitant]
     Active Substance: BENRALIZUMAB

REACTIONS (3)
  - Blepharospasm [Unknown]
  - Dyspnoea [Unknown]
  - COVID-19 [Unknown]
